FAERS Safety Report 14883420 (Version 2)
Quarter: 2018Q2

REPORT INFORMATION
  Report Type: Report from Study
  Country: US (occurrence: US)
  Receive Date: 20180511
  Receipt Date: 20180628
  Transmission Date: 20180711
  Serious: Yes (Hospitalization, Other)
  Sender: FDA-Public Use
  Company Number: US-JNJFOC-20180511268

PATIENT
  Age: 52 Year
  Sex: Female

DRUGS (2)
  1. IMBRUVICA [Suspect]
     Active Substance: IBRUTINIB
     Indication: WALDENSTROM^S MACROGLOBULINAEMIA
     Dosage: 420 MG, QD
     Route: 048
     Dates: start: 20161216, end: 201801
  2. IMBRUVICA [Suspect]
     Active Substance: IBRUTINIB
     Indication: WALDENSTROM^S MACROGLOBULINAEMIA
     Dosage: 420 MG, QD
     Route: 048
     Dates: start: 2018, end: 20180507

REACTIONS (8)
  - Pneumonia [Unknown]
  - Blood immunoglobulin M decreased [Not Recovered/Not Resolved]
  - Onychoclasis [Recovering/Resolving]
  - Malignant pleural effusion [Unknown]
  - Influenza [Unknown]
  - Disease progression [Recovered/Resolved]
  - Localised infection [Unknown]
  - Nausea [Unknown]

NARRATIVE: CASE EVENT DATE: 201612
